FAERS Safety Report 11135242 (Version 6)
Quarter: 2015Q3

REPORT INFORMATION
  Report Type: Spontaneous
  Country: IT (occurrence: IT)
  Receive Date: 20150525
  Receipt Date: 20150727
  Transmission Date: 20151125
  Serious: Yes (Death, Life-Threatening, Hospitalization)
  Sender: FDA-Public Use
  Company Number: IT-JNJFOC-20150515776

PATIENT
  Age: 70 Year
  Sex: Female
  Weight: 100 kg

DRUGS (5)
  1. FUROSEMIDE. [Concomitant]
     Active Substance: FUROSEMIDE
     Indication: ASCITES
     Route: 048
     Dates: end: 20150520
  2. OLYSIO [Suspect]
     Active Substance: SIMEPREVIR
     Indication: CHRONIC HEPATITIS C
     Route: 048
     Dates: start: 20150401, end: 20150520
  3. SOVALDI [Suspect]
     Active Substance: SOFOSBUVIR
     Indication: CHRONIC HEPATITIS C
     Route: 048
     Dates: start: 20150401, end: 20150520
  4. TENORMIN [Concomitant]
     Active Substance: ATENOLOL
     Indication: VARICES OESOPHAGEAL
     Route: 048
     Dates: end: 20150520
  5. ZYLORIC [Concomitant]
     Active Substance: ALLOPURINOL
     Indication: HYPERURICAEMIA
     Route: 048
     Dates: end: 20150520

REACTIONS (13)
  - Dehydration [Not Recovered/Not Resolved]
  - Jaundice [Not Recovered/Not Resolved]
  - Disorientation [Unknown]
  - Hepatic encephalopathy [Unknown]
  - Hypotension [Unknown]
  - Death [Fatal]
  - Hepatic failure [Not Recovered/Not Resolved]
  - Coma [Unknown]
  - Diarrhoea haemorrhagic [Unknown]
  - Rectal haemorrhage [Unknown]
  - Diarrhoea [Unknown]
  - Acute kidney injury [Not Recovered/Not Resolved]
  - Asthenia [Unknown]

NARRATIVE: CASE EVENT DATE: 20150520
